FAERS Safety Report 25894403 (Version 1)
Quarter: 2025Q4

REPORT INFORMATION
  Report Type: Spontaneous
  Country: US (occurrence: US)
  Receive Date: 20251008
  Receipt Date: 20251008
  Transmission Date: 20260118
  Serious: No
  Sender: ACADIA PHARMACEUTICALS
  Company Number: US-ACADIA PHARMACEUTICALS INC.-ACA-2025-TRF-010740

PATIENT
  Age: 16 Year

DRUGS (3)
  1. DAYBUE [Suspect]
     Active Substance: TROFINETIDE
     Indication: Rett syndrome
     Dosage: 45 MILLILITER, BID (BEFORE STOPPING)
     Route: 048
     Dates: start: 20240629, end: 20250210
  2. PHENOLPHTHALEIN [Concomitant]
     Active Substance: PHENOLPHTHALEIN
  3. MELATONIN [Concomitant]
     Active Substance: MELATONIN

REACTIONS (2)
  - Diarrhoea [Unknown]
  - Drug ineffective [Unknown]
